FAERS Safety Report 6688535-2 (Version None)
Quarter: 2010Q2

REPORT INFORMATION
  Report Type: 
  Country: None (occurrence: None)
  Receive Date: 20100414
  Receipt Date: 20100330
  Transmission Date: 20101027
  Serious: Yes (Death)
  Sender: FDA-Public Use
  Company Number: B0646323A

PATIENT
  Age: 45 Year
  Sex: 0

DRUGS (1)
  1. SUMATRIPTAN SUCCINATE [Suspect]
     Indication: MIGRAINE

REACTIONS (1)
  - HAEMORRHAGE INTRACRANIAL [None]
